FAERS Safety Report 8028218-X (Version None)
Quarter: 2012Q1

REPORT INFORMATION
  Report Type: 
  Country: None (occurrence: None)
  Receive Date: 20120106
  Receipt Date: 20120103
  Transmission Date: 20120608
  Serious: Yes (Other)
  Sender: FDA-Public Use
  Company Number: US-ASTRAZENECA-2011SE16544

PATIENT
  Age: 62 Year
  Sex: Male
  Weight: 87.3 kg

DRUGS (2)
  1. PROTONIX [Concomitant]
  2. NEXIUM [Suspect]
     Indication: GASTROOESOPHAGEAL REFLUX DISEASE
     Route: 048
     Dates: start: 20040101

REACTIONS (3)
  - FEELING ABNORMAL [None]
  - BILE DUCT CANCER [None]
  - DRUG DOSE OMISSION [None]
